FAERS Safety Report 6585752-7 (Version None)
Quarter: 2010Q1

REPORT INFORMATION
  Report Type: 
  Country: None (occurrence: None)
  Receive Date: 20100217
  Receipt Date: 20100209
  Transmission Date: 20100710
  Serious: Yes (Hospitalization)
  Sender: FDA-Public Use
  Company Number: FR-NAPPMUNDI-GBR-2010-0006082

PATIENT
  Age: 30 Year
  Sex: Male

DRUGS (4)
  1. OXYCONTIN [Suspect]
     Indication: PAIN
     Dosage: 180 MG, DAILY
     Route: 048
  2. XENICAL [Interacting]
     Indication: PANCREATITIS CHRONIC
     Dosage: 1 DF, TID
     Route: 048
  3. MORPHINE [Concomitant]
     Route: 042
  4. ABSTRAL [Concomitant]
     Route: 060

REACTIONS (2)
  - DRUG INEFFECTIVE [None]
  - DRUG INTERACTION [None]
